FAERS Safety Report 17057744 (Version 3)
Quarter: 2021Q3

REPORT INFORMATION
  Report Type: Report from Study
  Country: US (occurrence: US)
  Receive Date: 20191121
  Receipt Date: 20210803
  Transmission Date: 20211014
  Serious: Yes (Other)
  Sender: FDA-Public Use
  Company Number: US-HORIZON-ACT-0314-2019

PATIENT

DRUGS (3)
  1. ACTIMMUNE [Suspect]
     Active Substance: INTERFERON GAMMA-1B
     Indication: NEUTROPHIL FUNCTION DISORDER
     Dosage: UNK
     Route: 065
     Dates: start: 20191029
  2. ACTIMMUNE [Suspect]
     Active Substance: INTERFERON GAMMA-1B
     Dosage: 60 MCG TIW 3 SEPARATED DOSES
  3. ACTIMMUNE [Suspect]
     Active Substance: INTERFERON GAMMA-1B
     Dosage: 0.45 ML, TWICE A WEEK

REACTIONS (11)
  - Injection site erythema [Unknown]
  - Lack of injection site rotation [Unknown]
  - Product quality issue [Unknown]
  - Anxiety [Unknown]
  - Fatigue [Unknown]
  - Injection site necrosis [Unknown]
  - Injection site discolouration [Unknown]
  - Neutropenia [Unknown]
  - Injection site scar [Unknown]
  - Injection site pain [Not Recovered/Not Resolved]
  - Scar pain [Unknown]
